FAERS Safety Report 16630737 (Version 2)
Quarter: 2019Q3

REPORT INFORMATION
  Report Type: Spontaneous
  Country: DE (occurrence: DE)
  Receive Date: 20190725
  Receipt Date: 20190826
  Transmission Date: 20191004
  Serious: Yes (Hospitalization, Other)
  Sender: FDA-Public Use
  Company Number: DE-VERTEX PHARMACEUTICALS-2019-006800

PATIENT
  Age: 26 Year
  Sex: Female

DRUGS (10)
  1. COLISTIN [Concomitant]
     Active Substance: COLISTIN
     Route: 055
  2. DORNASE [Concomitant]
     Active Substance: STREPTODORNASE\STREPTOKINASE
     Dosage: UNK, QD
     Route: 055
  3. MOVICOL PLAIN [Concomitant]
     Active Substance: POLYETHYLENE GLYCOL 3350\POTASSIUM CHLORIDE\SODIUM BICARBONATE\SODIUM CHLORIDE
     Route: 048
  4. NACL [Concomitant]
     Active Substance: SODIUM CHLORIDE
     Route: 055
  5. FORMOTEROL [Concomitant]
     Active Substance: FORMOTEROL
     Route: 055
  6. SYMKEVI [Suspect]
     Active Substance: IVACAFTOR\TEZACAFTOR
     Indication: CYSTIC FIBROSIS
     Dosage: 100 MG TEZACAFTOR/150 MG IVACAFTOR AM
     Route: 048
     Dates: start: 201903, end: 20190418
  7. CIPROFLOXACIN. [Concomitant]
     Active Substance: CIPROFLOXACIN
     Indication: INFECTIVE PULMONARY EXACERBATION OF CYSTIC FIBROSIS
  8. KALYDECO [Suspect]
     Active Substance: IVACAFTOR
     Indication: CYSTIC FIBROSIS
     Dosage: 150 MG TABLETS PM
     Route: 048
     Dates: start: 201903, end: 20190418
  9. FENOTEROL;IPRATROPIUM BROMIDE [Concomitant]
     Route: 055
  10. INSULIN [Concomitant]
     Active Substance: INSULIN NOS

REACTIONS (3)
  - Acute kidney injury [Recovered/Resolved]
  - Urinary tract infection [Unknown]
  - Nephrotic syndrome [Recovering/Resolving]

NARRATIVE: CASE EVENT DATE: 2019
